FAERS Safety Report 20656418 (Version 3)
Quarter: 2022Q2

REPORT INFORMATION
  Report Type: Spontaneous
  Country: ES (occurrence: ES)
  Receive Date: 20220331
  Receipt Date: 20220503
  Transmission Date: 20220720
  Serious: Yes (Hospitalization, Other)
  Sender: FDA-Public Use
  Company Number: ES-MLMSERVICE-20220315-3434053-1

PATIENT
  Age: 27 Year
  Sex: Male

DRUGS (2)
  1. AMOXICILLIN [Suspect]
     Active Substance: AMOXICILLIN
     Indication: Pharyngotonsillitis
     Dosage: 500 MILLIGRAM, 3 TIMES A DAY
     Route: 048
  2. AMOXICILLIN [Suspect]
     Active Substance: AMOXICILLIN
     Indication: Evidence based treatment

REACTIONS (4)
  - Infectious mononucleosis [Recovered/Resolved]
  - Condition aggravated [Recovered/Resolved]
  - Epstein-Barr virus infection [Recovered/Resolved]
  - Rash [Recovered/Resolved]
